FAERS Safety Report 9082871 (Version 1)
Quarter: 2013Q1

REPORT INFORMATION
  Report Type: Report from Study
  Country: US (occurrence: US)
  Receive Date: 20130130
  Receipt Date: 20130130
  Transmission Date: 20140127
  Serious: No
  Sender: FDA-Public Use
  Company Number: US-ABBOTT-12P-163-0971097-00

PATIENT
  Sex: 0
  Weight: 62.2 kg

DRUGS (3)
  1. HUMIRA 40 MG/0.8 ML PEN [Suspect]
     Indication: UVEITIS
     Dates: start: 201112, end: 201204
  2. METHOTREXATE [Concomitant]
     Indication: UVEITIS
  3. PRINIZOLAM [Concomitant]
     Indication: UVEITIS

REACTIONS (1)
  - Off label use [Recovered/Resolved]
